FAERS Safety Report 8847575 (Version 2)
Quarter: 2012Q4

REPORT INFORMATION
  Report Type: Report from Study
  Country: RO (occurrence: RO)
  Receive Date: 20121018
  Receipt Date: 20121108
  Transmission Date: 20130627
  Serious: Yes (Hospitalization, Other)
  Sender: FDA-Public Use
  Company Number: RO-FRI-1000039425

PATIENT
  Age: 66 Year
  Sex: Male
  Weight: 91 kg

DRUGS (9)
  1. ROFLUMILAST [Suspect]
     Indication: CHRONIC OBSTRUCTIVE PULMONARY DISEASE
     Route: 048
     Dates: start: 20120725
  2. ROFLUMILAST [Suspect]
     Indication: CHRONIC OBSTRUCTIVE PULMONARY DISEASE
     Dosage: 500 mcg
     Route: 048
     Dates: start: 20120725
  3. ADVAIR [Concomitant]
     Indication: CHRONIC OBSTRUCTIVE PULMONARY DISEASE
     Dosage: 100/500 mcg
     Route: 055
     Dates: start: 20120826
  4. ALBUTEROL [Concomitant]
     Indication: CHRONIC OBSTRUCTIVE PULMONARY DISEASE
     Route: 055
     Dates: start: 20120711
  5. CRESTOR [Concomitant]
     Indication: DYSLIPIDAEMIA
     Dosage: 10 mg
     Route: 048
     Dates: start: 20120826
  6. MICARDIS [Concomitant]
     Indication: CARDIAC FAILURE
     Dosage: 80 mg
     Route: 048
     Dates: start: 20120826
  7. NEBILET [Concomitant]
     Indication: CARDIAC FAILURE
     Dosage: 5 mg
     Route: 048
     Dates: start: 20120826
  8. DIUREX [Concomitant]
     Indication: CARDIAC FAILURE
     Dosage: 1 pill (20 mg/50 mg)
     Route: 048
     Dates: start: 20120826
  9. ASPENTER [Concomitant]
     Indication: ISCHAEMIC CARDIOMYOPATHY
     Dosage: 75 mg
     Route: 048
     Dates: start: 20120826

REACTIONS (5)
  - Pneumonia [Recovered/Resolved]
  - Lung neoplasm malignant [Not Recovered/Not Resolved]
  - Lung consolidation [None]
  - Hilar lymphadenopathy [None]
  - Bronchiectasis [None]
